FAERS Safety Report 12226855 (Version 2)
Quarter: 2016Q2

REPORT INFORMATION
  Report Type: Report from Study
  Country: IT (occurrence: IT)
  Receive Date: 20160331
  Receipt Date: 20160429
  Transmission Date: 20160815
  Serious: Yes (Hospitalization)
  Sender: FDA-Public Use
  Company Number: IT-AMGEN-ITACT2016011540

PATIENT
  Age: 72 Year
  Sex: Male

DRUGS (4)
  1. CARFILZOMIB [Suspect]
     Active Substance: CARFILZOMIB
     Indication: PLASMA CELL MYELOMA
     Dosage: 51.5 MG, PER CHEMO REGIM
     Route: 042
     Dates: start: 20151111
  2. CEFTAZIDIME. [Concomitant]
     Active Substance: CEFTAZIDIME
     Dosage: 1 G, UNK
     Route: 042
     Dates: start: 20160112, end: 20160128
  3. METHYLPREDNISOLONE. [Concomitant]
     Active Substance: METHYLPREDNISOLONE
     Dosage: 20 MG, UNK
     Route: 042
     Dates: start: 20160109, end: 20160119
  4. DEXAMETHASONE. [Suspect]
     Active Substance: DEXAMETHASONE
     Indication: PLASMA CELL MYELOMA
     Dosage: 20 MG, PER CHEMO REGIM
     Route: 042
     Dates: start: 20151111

REACTIONS (3)
  - Respiratory failure [Recovered/Resolved]
  - Cardiac failure congestive [Recovered/Resolved]
  - Pneumonia [Recovered/Resolved]

NARRATIVE: CASE EVENT DATE: 20160122
